FAERS Safety Report 7334308-7 (Version None)
Quarter: 2011Q1

REPORT INFORMATION
  Report Type: 
  Country: None (occurrence: None)
  Receive Date: 20110307
  Receipt Date: 20110223
  Transmission Date: 20110831
  Serious: Yes (Other)
  Sender: FDA-Public Use
  Company Number: JP-JNJFOC-20110201964

PATIENT
  Age: 79 Year
  Sex: Male
  Weight: 43.3 kg

DRUGS (15)
  1. ITOROL [Concomitant]
     Indication: ANGINA PECTORIS
     Route: 048
  2. ARICEPT [Concomitant]
     Indication: DEMENTIA ALZHEIMER'S TYPE
     Route: 048
  3. TAKEPRON [Concomitant]
     Indication: REFLUX OESOPHAGITIS
     Route: 048
  4. LIVALO [Concomitant]
     Indication: DYSLIPIDAEMIA
     Route: 048
  5. GLIMICRON [Suspect]
     Indication: PRODUCT USED FOR UNKNOWN INDICATION
     Route: 065
  6. ASPIRIN [Concomitant]
     Indication: ATRIAL FIBRILLATION
     Route: 048
  7. SELBEX [Concomitant]
     Indication: GASTRITIS
     Route: 048
  8. PROCYLIN [Concomitant]
     Indication: ARTERIAL OCCLUSIVE DISEASE
     Route: 048
  9. OLMETEC [Concomitant]
     Indication: HYPERTENSION
     Route: 048
  10. AMARYL [Suspect]
     Indication: DIABETES MELLITUS
     Route: 048
     Dates: start: 20101206, end: 20101207
  11. HERBESSER R [Concomitant]
     Indication: HYPERTENSION
     Route: 048
  12. CRAVIT [Suspect]
     Indication: URINARY TRACT INFECTION
     Route: 048
     Dates: start: 20101206, end: 20101207
  13. LULLAN [Concomitant]
     Route: 065
  14. WARFARIN [Concomitant]
     Indication: ATRIAL FIBRILLATION
     Route: 048
  15. SENNOSIDE [Concomitant]
     Route: 065

REACTIONS (3)
  - HYPOGLYCAEMIA [None]
  - RENAL IMPAIRMENT [None]
  - ALTERED STATE OF CONSCIOUSNESS [None]
